FAERS Safety Report 6332628-6 (Version None)
Quarter: 2009Q3

REPORT INFORMATION
  Report Type: 
  Country: None (occurrence: None)
  Receive Date: 20090828
  Receipt Date: 20090824
  Transmission Date: 20100115
  Serious: Yes (Death, Other)
  Sender: FDA-Public Use
  Company Number: PT-ROCHE-651919

PATIENT
  Age: 66 Year
  Sex: Male

DRUGS (1)
  1. GANCICLOVIR [Suspect]
     Route: 065

REACTIONS (2)
  - CYTOMEGALOVIRUS ENTERITIS [None]
  - DRUG INEFFECTIVE [None]
